FAERS Safety Report 5553246-3 (Version None)
Quarter: 2007Q4

REPORT INFORMATION
  Report Type: 
  Country: None (occurrence: None)
  Receive Date: 20071212
  Receipt Date: 20070711
  Transmission Date: 20080405
  Serious: No
  Sender: FDA-Public Use
  Company Number: US-AMGEN-KDL231699

PATIENT
  Sex: Female

DRUGS (11)
  1. ENBREL [Suspect]
     Indication: PSORIASIS
     Route: 058
     Dates: start: 20070405
  2. CLOBETASOL PROPIONATE [Concomitant]
     Route: 061
  3. UNSPECIFIED TOPICAL PRODUCT [Concomitant]
  4. CALCIUM [Concomitant]
  5. EFFEXOR [Concomitant]
  6. MEVACOR [Concomitant]
  7. PRILOSEC [Concomitant]
  8. PRINIVIL [Concomitant]
  9. ASCORBIC ACID [Concomitant]
  10. VITAMIN E [Concomitant]
  11. ZIAC [Concomitant]

REACTIONS (1)
  - PSORIASIS [None]
